FAERS Safety Report 23764571 (Version 1)
Quarter: 2024Q2

REPORT INFORMATION
  Report Type: Spontaneous
  Country: US (occurrence: US)
  Receive Date: 20240420
  Receipt Date: 20240420
  Transmission Date: 20240715
  Serious: No
  Sender: FDA-Public Use
  Company Number: US-HALEON-2166774

PATIENT
  Age: 68 Year
  Sex: Female

DRUGS (1)
  1. ROBITUSSIN HONEY MAXIMUM STRENGTH COUGH AND CHEST CONGESTION DM [Suspect]
     Active Substance: DEXTROMETHORPHAN HYDROBROMIDE\GUAIFENESIN
     Indication: Product used for unknown indication
     Dosage: EXPDATE:202808 USED IT ONCE
     Dates: start: 20240402

REACTIONS (1)
  - Drug ineffective [Unknown]

NARRATIVE: CASE EVENT DATE: 20240402
